FAERS Safety Report 11842154 (Version 1)
Quarter: 2015Q4

REPORT INFORMATION
  Report Type: Spontaneous
  Country: DE (occurrence: DE)
  Receive Date: 20151216
  Receipt Date: 20151216
  Transmission Date: 20160305
  Serious: Yes (Hospitalization)
  Sender: FDA-Public Use
  Company Number: GXKR2015DE005446

PATIENT

DRUGS (1)
  1. CANDESARTAN - 1 A PHARMA [Suspect]
     Active Substance: CANDESARTAN
     Indication: PRODUCT USED FOR UNKNOWN INDICATION
     Dosage: 16 MG, QD
     Dates: start: 201405, end: 201511

REACTIONS (14)
  - Myocardial infarction [Unknown]
  - Arrhythmia [Recovering/Resolving]
  - Nerve injury [Unknown]
  - Nausea [Unknown]
  - Arthralgia [Recovered/Resolved]
  - Asthenia [Unknown]
  - Myalgia [Recovered/Resolved]
  - Hyperhidrosis [Unknown]
  - Abdominal pain upper [Recovering/Resolving]
  - Cough [Unknown]
  - Back pain [Unknown]
  - Influenza like illness [Unknown]
  - Dysgeusia [Unknown]
  - Angina pectoris [Recovering/Resolving]

NARRATIVE: CASE EVENT DATE: 2015
